FAERS Safety Report 5253306-0 (Version None)
Quarter: 2007Q1

REPORT INFORMATION
  Report Type: 
  Country: None (occurrence: None)
  Receive Date: 20070301
  Receipt Date: 20070222
  Transmission Date: 20070707
  Serious: Yes (Other)
  Sender: FDA-Public Use
  Company Number: US-JNJFOC-20070205453

PATIENT
  Sex: Female
  Weight: 104.33 kg

DRUGS (12)
  1. INFLIXIMAB [Suspect]
     Indication: RHEUMATOID ARTHRITIS
     Route: 042
  2. ENALAPRIL MALEATE [Concomitant]
  3. MECLIZINE [Concomitant]
  4. POTASSIUM ACETATE [Concomitant]
  5. FUROSEMIDE [Concomitant]
  6. WARFARIN SODIUM [Concomitant]
  7. NEXIUM [Concomitant]
  8. METOPROLOL SUCCINATE [Concomitant]
  9. FLEXERIL [Concomitant]
  10. AMITRIPTYLINE HCL [Concomitant]
  11. DIGITEK [Concomitant]
  12. SYNTHROID [Concomitant]

REACTIONS (1)
  - SKIN CANCER [None]
